FAERS Safety Report 16379808 (Version 1)
Quarter: 2019Q2

REPORT INFORMATION
  Report Type: Report from Study
  Country: ES (occurrence: ES)
  Receive Date: 20190531
  Receipt Date: 20190531
  Transmission Date: 20190711
  Serious: Yes (Hospitalization, Other)
  Sender: FDA-Public Use
  Company Number: ES-BRISTOL-MYERS SQUIBB COMPANY-BMS-2019-051289

PATIENT
  Age: 77 Year
  Sex: Female
  Weight: 55 kg

DRUGS (4)
  1. MEPIVACAINA ADR [Concomitant]
     Indication: PERIARTHRITIS
     Dosage: 1 AMP
     Route: 014
     Dates: start: 20171107, end: 20171107
  2. TAPENTADOL [Concomitant]
     Active Substance: TAPENTADOL
     Indication: MUSCULOSKELETAL PAIN
     Dosage: 25 MILLIGRAM
     Route: 014
     Dates: start: 20171111, end: 20171112
  3. METAMIZOLE [Concomitant]
     Active Substance: METAMIZOLE
     Indication: MUSCULOSKELETAL PAIN
     Dosage: 575 MILLIGRAM
     Route: 048
     Dates: start: 20170914, end: 20171115
  4. TRIAMCINOLONE ACETONIDE. [Suspect]
     Active Substance: TRIAMCINOLONE ACETONIDE
     Indication: PERIARTHRITIS
     Dosage: 40 MILLIGRAM (1 AMP)
     Route: 014
     Dates: start: 20171107, end: 20171107

REACTIONS (1)
  - Stevens-Johnson syndrome [Recovered/Resolved with Sequelae]

NARRATIVE: CASE EVENT DATE: 20171115
